FAERS Safety Report 21747422 (Version 2)
Quarter: 2022Q4

REPORT INFORMATION
  Report Type: Spontaneous
  Country: FR (occurrence: FR)
  Receive Date: 20221219
  Receipt Date: 20221223
  Transmission Date: 20230112
  Serious: Yes (Life-Threatening, Other)
  Sender: FDA-Public Use
  Company Number: FR-GSKCCFEMEA-Case-01633081_AE-65429

PATIENT

DRUGS (1)
  1. ALBUTEROL [Suspect]
     Active Substance: ALBUTEROL
     Indication: Respiratory disorder
     Dosage: UNK

REACTIONS (5)
  - Dyspnoea [Unknown]
  - Foreign body in respiratory tract [Unknown]
  - Asphyxia [Unknown]
  - Panic reaction [Unknown]
  - Injury [Unknown]
